FAERS Safety Report 9179756 (Version 1)
Quarter: 2012Q4

REPORT INFORMATION
  Report Type: Report from Study
  Country: CA (occurrence: CA)
  Receive Date: 20121029
  Receipt Date: 20121029
  Transmission Date: 20130627
  Serious: Yes (Hospitalization, Other)
  Sender: FDA-Public Use
  Company Number: CA-JNJFOC-20121010157

PATIENT
  Age: 53 None
  Sex: Female
  Weight: 36.29 kg

DRUGS (3)
  1. REMICADE [Suspect]
     Indication: CROHN^S DISEASE
     Route: 042
     Dates: start: 20120813
  2. REMICADE [Suspect]
     Indication: CROHN^S DISEASE
     Route: 042
     Dates: start: 20121010
  3. VITAMIN B12 [Concomitant]
     Route: 030

REACTIONS (4)
  - Crohn^s disease [Unknown]
  - Anaemia [Unknown]
  - Weight decreased [Unknown]
  - Vomiting [Unknown]
